FAERS Safety Report 6870892-5 (Version None)
Quarter: 2010Q3

REPORT INFORMATION
  Report Type: 
  Country: None (occurrence: None)
  Receive Date: 20100723
  Receipt Date: 20100721
  Transmission Date: 20110219
  Serious: Yes (Hospitalization)
  Sender: FDA-Public Use
  Company Number: PHHY2010TR42638

PATIENT

DRUGS (2)
  1. EXELON [Suspect]
     Dosage: 10 CM, UNK
     Route: 062
  2. EXELON [Suspect]
     Dosage: ALL OF THE PATCHES IN THE EXELON 10 CM2 BOX
     Route: 062

REACTIONS (2)
  - INCORRECT DOSE ADMINISTERED [None]
  - WRONG TECHNIQUE IN DRUG USAGE PROCESS [None]
